FAERS Safety Report 9746945 (Version 2)
Quarter: 2013Q4

REPORT INFORMATION
  Report Type: Report from Study
  Country: DE (occurrence: NL)
  Receive Date: 20131211
  Receipt Date: 20131211
  Transmission Date: 20140711
  Serious: Yes (Hospitalization)
  Sender: FDA-Public Use
  Company Number: DE-ACTELION-A-NJ2013-88572

PATIENT
  Age: 60 Year
  Sex: Female

DRUGS (16)
  1. VENTAVIS [Suspect]
     Indication: PULMONARY ARTERIAL HYPERTENSION
     Dosage: 5 MCG, Q4HRS
     Route: 055
     Dates: start: 20130826
  2. AZATHIOPRINE [Concomitant]
  3. CALCICHEW [Concomitant]
  4. COTRIMOXAZOL [Concomitant]
  5. EUTHYROX [Concomitant]
  6. FUROSEMIDE [Concomitant]
  7. OMEPRAZOL [Concomitant]
  8. PREDNISONE [Concomitant]
  9. REVATIO [Concomitant]
  10. SPIRONOLACTON [Concomitant]
  11. DEVARON [Concomitant]
  12. FENTANYL [Concomitant]
  13. PARACETAMOL [Concomitant]
  14. INSTANYL [Concomitant]
  15. TEMAZEPAM [Concomitant]
  16. MAGNESIUM [Concomitant]

REACTIONS (7)
  - Lung transplant [Unknown]
  - Dyspnoea [Not Recovered/Not Resolved]
  - Oedema [Not Recovered/Not Resolved]
  - Pulmonary congestion [Unknown]
  - Infection [Unknown]
  - Pulmonary arterial hypertension [Unknown]
  - Respiratory depth decreased [Unknown]
